FAERS Safety Report 7125881-2 (Version None)
Quarter: 2010Q4

REPORT INFORMATION
  Report Type: 
  Country: None (occurrence: None)
  Receive Date: 20101129
  Receipt Date: 20101118
  Transmission Date: 20110411
  Serious: Yes (Death)
  Sender: FDA-Public Use
  Company Number: JP-PFIZER INC-2010051036

PATIENT
  Age: 75 Year
  Sex: Female
  Weight: 55 kg

DRUGS (8)
  1. SILDENAFIL CITRATE [Suspect]
     Indication: PULMONARY HYPERTENSION
     Dosage: 20 MG, 3X/DAY
     Route: 048
     Dates: start: 20100324
  2. DORNER [Concomitant]
     Indication: PULMONARY HYPERTENSION
     Dosage: 20 UG, 1X/DAY
     Route: 048
     Dates: start: 20100317
  3. BLOPRESS [Concomitant]
     Dosage: 4 MG, 1X/DAY
     Route: 048
  4. GASTER [Concomitant]
     Indication: GASTRITIS
     Dosage: 20 MG, 1X/DAY
     Route: 048
  5. WARFARIN [Concomitant]
     Dosage: 1 MG, 1X/DAY
     Route: 048
  6. AMLODIPINE [Concomitant]
     Dosage: 5 MG, 1X/DAY
     Route: 048
     Dates: start: 20100331
  7. PREDNISOLONE [Concomitant]
     Dosage: 15 MG, 2X/DAY
     Route: 048
     Dates: start: 20100331
  8. ALENDRONATE SODIUM [Concomitant]
     Dosage: 35 MG, 1X/DAY
     Route: 048
     Dates: start: 20100331

REACTIONS (1)
  - DISSEMINATED INTRAVASCULAR COAGULATION [None]
